FAERS Safety Report 23782437 (Version 1)
Quarter: 2024Q2

REPORT INFORMATION
  Report Type: Spontaneous
  Country: FR (occurrence: FR)
  Receive Date: 20240425
  Receipt Date: 20240425
  Transmission Date: 20240715
  Serious: Yes (Hospitalization)
  Sender: FDA-Public Use
  Company Number: FR-AFSSAPS-GR2024000109

PATIENT
  Age: 50 Year
  Sex: Female
  Weight: 87 kg

DRUGS (4)
  1. OLANZAPINE [Suspect]
     Active Substance: OLANZAPINE
     Indication: Intentional overdose
     Dosage: UNK
     Route: 048
     Dates: start: 20231229, end: 20231229
  2. ZOPICLONE [Suspect]
     Active Substance: ZOPICLONE
     Indication: Intentional overdose
     Dosage: UNK
     Route: 048
     Dates: start: 20231229, end: 20231229
  3. DIAZEPAM [Suspect]
     Active Substance: DIAZEPAM
     Indication: Intentional overdose
     Dosage: 400 MILLIGRAM, IN TOTAL
     Route: 048
     Dates: start: 20231229, end: 20231229
  4. ALCOHOL [Suspect]
     Active Substance: ALCOHOL
     Indication: Alcohol poisoning
     Dosage: UNK
     Route: 048
     Dates: start: 20231229, end: 20231229

REACTIONS (4)
  - Coma [Recovered/Resolved]
  - Hypothermia [Recovered/Resolved]
  - Poisoning deliberate [Recovered/Resolved]
  - Miosis [Recovered/Resolved]

NARRATIVE: CASE EVENT DATE: 20231229
